FAERS Safety Report 8362693-6 (Version None)
Quarter: 2012Q2

REPORT INFORMATION
  Report Type: 
  Country: None (occurrence: None)
  Receive Date: 20120514
  Receipt Date: 20120502
  Transmission Date: 20120825
  Serious: Yes (Hospitalization)
  Sender: FDA-Public Use
  Company Number: DSA_54896_2012

PATIENT
  Sex: Female

DRUGS (2)
  1. XENAZINE [Suspect]
     Indication: HUNTINGTON'S DISEASE
     Dosage: 25 MG TID ORAL
     Route: 048
     Dates: start: 20120125
  2. DILANTIN [Concomitant]

REACTIONS (5)
  - CHOREA [None]
  - PNEUMONIA ASPIRATION [None]
  - CONDITION AGGRAVATED [None]
  - URINARY TRACT INFECTION [None]
  - DRUG LEVEL INCREASED [None]
